FAERS Safety Report 10015493 (Version 3)
Quarter: 2014Q3

REPORT INFORMATION
  Report Type: Report from Study
  Country: JP (occurrence: JP)
  Receive Date: 20140317
  Receipt Date: 20140904
  Transmission Date: 20150326
  Serious: Yes (Hospitalization)
  Sender: FDA-Public Use
  Company Number: JP-PFIZER INC-2014069104

PATIENT
  Age: 65 Year
  Sex: Female
  Weight: 45.2 kg

DRUGS (5)
  1. URSO [Concomitant]
     Active Substance: URSODIOL
     Dosage: 100 MG, 3X/DAY
     Route: 048
     Dates: start: 20140123
  2. PURSENNID [Concomitant]
     Active Substance: SENNOSIDES A AND B CALCIUM
     Dosage: 12 MG, AS NEEDED
     Route: 048
     Dates: start: 20140119
  3. BROCIN-CODEINE [Concomitant]
     Dosage: 2 ML, AS NEEDED
     Route: 048
     Dates: start: 20140117
  4. MAGMITT [Concomitant]
     Active Substance: MAGNESIUM OXIDE
     Dosage: 330 MG, 2X/DAY
     Route: 048
  5. XALKORI [Suspect]
     Active Substance: CRIZOTINIB
     Indication: NON-SMALL CELL LUNG CANCER
     Dosage: 250 MG, 2X/DAY (500 MG DAILY)
     Route: 048
     Dates: start: 20140115, end: 20140127

REACTIONS (2)
  - Toxic skin eruption [Recovered/Resolved]
  - Hepatic function abnormal [Recovering/Resolving]

NARRATIVE: CASE EVENT DATE: 20140123
